FAERS Safety Report 10688607 (Version 6)
Quarter: 2015Q3

REPORT INFORMATION
  Report Type: Spontaneous
  Country: JP (occurrence: JP)
  Receive Date: 20150102
  Receipt Date: 20150727
  Transmission Date: 20151125
  Serious: Yes (Death, Life-Threatening)
  Sender: FDA-Public Use
  Company Number: JP-BAUSCH-SYM-2013-04995

PATIENT
  Age: 49 Year
  Sex: Male

DRUGS (11)
  1. CHOREAZINE TABLETS [Suspect]
     Active Substance: TETRABENAZINE
     Route: 048
     Dates: start: 20130618, end: 20130624
  2. CHOREAZINE TABLETS [Suspect]
     Active Substance: TETRABENAZINE
     Route: 048
     Dates: start: 20130702, end: 20130708
  3. CHOREAZINE TABLETS [Suspect]
     Active Substance: TETRABENAZINE
     Route: 048
     Dates: start: 20130709, end: 20130722
  4. SERENACE [Concomitant]
     Active Substance: HALOPERIDOL
     Indication: PRODUCT USED FOR UNKNOWN INDICATION
     Route: 048
     Dates: start: 20130528, end: 20150121
  5. CHOREAZINE TABLETS [Suspect]
     Active Substance: TETRABENAZINE
     Route: 048
     Dates: start: 20130611, end: 20130617
  6. CHOREAZINE TABLETS [Suspect]
     Active Substance: TETRABENAZINE
     Indication: HUNTINGTON^S DISEASE
     Route: 048
     Dates: start: 20130806, end: 20150121
  7. CHOREAZINE TABLETS [Suspect]
     Active Substance: TETRABENAZINE
     Route: 048
     Dates: start: 20130723, end: 20130805
  8. GRAMALIL [Concomitant]
     Active Substance: TIAPRIDE HYDROCHLORIDE
     Indication: PRODUCT USED FOR UNKNOWN INDICATION
     Route: 048
     Dates: start: 20130528, end: 20150121
  9. CHOREAZINE TABLETS [Suspect]
     Active Substance: TETRABENAZINE
     Route: 048
     Dates: start: 20130528, end: 20130603
  10. CHOREAZINE TABLETS [Suspect]
     Active Substance: TETRABENAZINE
     Route: 048
     Dates: start: 20130604, end: 20130610
  11. CHOREAZINE TABLETS [Suspect]
     Active Substance: TETRABENAZINE
     Route: 048
     Dates: start: 20130625, end: 20130701

REACTIONS (3)
  - Subdural haematoma [Recovered/Resolved]
  - Somnolence [Recovered/Resolved]
  - Pneumonia aspiration [Fatal]

NARRATIVE: CASE EVENT DATE: 20130613
